FAERS Safety Report 6735527-0 (Version None)
Quarter: 2010Q2

REPORT INFORMATION
  Report Type: 
  Country: None (occurrence: None)
  Receive Date: 20100521
  Receipt Date: 20100514
  Transmission Date: 20101027
  Serious: Yes (Hospitalization)
  Sender: FDA-Public Use
  Company Number: IT-TEVA-234698ISR

PATIENT
  Sex: Female

DRUGS (4)
  1. TICLOPIDINE HCL [Suspect]
     Indication: THROMBOSIS PROPHYLAXIS
     Route: 048
     Dates: start: 20100319, end: 20100329
  2. IRBESARTAN [Concomitant]
     Indication: ESSENTIAL HYPERTENSION
     Route: 048
  3. METFORMIN HYDROCHLORIDE [Concomitant]
     Indication: TYPE 2 DIABETES MELLITUS
     Route: 048
  4. GLICLAZIDE [Concomitant]
     Indication: TYPE 2 DIABETES MELLITUS
     Route: 048

REACTIONS (1)
  - ACQUIRED HAEMOPHILIA [None]
